FAERS Safety Report 21693154 (Version 4)
Quarter: 2024Q3

REPORT INFORMATION
  Report Type: Report from Study
  Country: US (occurrence: US)
  Receive Date: 20221207
  Receipt Date: 20240827
  Transmission Date: 20241017
  Serious: Yes (Other)
  Sender: TAKEDA
  Company Number: US-TAKEDA-US201935386

PATIENT
  Age: 63 Year
  Sex: Female

DRUGS (2)
  1. HUMAN IMMUNOGLOBULIN G\HYALURONIDASE RECOMBINANT HUMAN [Suspect]
     Active Substance: HUMAN IMMUNOGLOBULIN G\HYALURONIDASE (HUMAN RECOMBINANT)
     Indication: Immunodeficiency common variable
     Dosage: UNK
     Route: 065
  2. HUMAN IMMUNOGLOBULIN G\HYALURONIDASE RECOMBINANT HUMAN [Suspect]
     Active Substance: HUMAN IMMUNOGLOBULIN G\HYALURONIDASE (HUMAN RECOMBINANT)
     Indication: Primary immunodeficiency syndrome
     Dosage: UNK UNK, Q2WEEKS
     Route: 058

REACTIONS (9)
  - Kidney infection [Unknown]
  - Pneumonia [Not Recovered/Not Resolved]
  - Mycobacterial infection [Unknown]
  - Illness [Recovering/Resolving]
  - Inappropriate schedule of product administration [Unknown]
  - Fracture [Unknown]
  - Meniscus injury [Unknown]
  - Ligament sprain [Unknown]
  - Fall [Unknown]

NARRATIVE: CASE EVENT DATE: 20191017
